FAERS Safety Report 8779473 (Version 1)
Quarter: 2012Q4

REPORT INFORMATION
  Report Type: Report from Study
  Country: GB (occurrence: GB)
  Receive Date: 20120912
  Receipt Date: 20120912
  Transmission Date: 20130627
  Serious: Yes (Hospitalization)
  Sender: FDA-Public Use
  Company Number: GB-ASTRAZENECA-2012SE69478

PATIENT
  Age: 24481 Day
  Sex: Male
  Weight: 63.2 kg

DRUGS (4)
  1. VANDETANIB [Suspect]
     Indication: PANCREATIC CARCINOMA METASTATIC
     Route: 048
     Dates: start: 20120326, end: 20120402
  2. GEMCITABINE [Suspect]
     Indication: PANCREATIC CARCINOMA METASTATIC
     Dosage: WEEKLY,1,000 MG/M2 AS 30-MINUTES I.V. INFUSION FOR 3 CONSECUTIVE WEEKS, FOLLOWED BY 1-WEEK BREAK.
     Route: 042
     Dates: start: 20120326, end: 20120402
  3. CODEINE PHOSPHATE [Concomitant]
     Indication: PAIN
     Route: 048
     Dates: start: 20120326
  4. INSULIN [Concomitant]
     Indication: DIABETES MELLITUS
     Route: 058
     Dates: start: 20120116

REACTIONS (2)
  - Pollakiuria [Recovered/Resolved]
  - Pyrexia [Recovered/Resolved]
